FAERS Safety Report 9657326 (Version 11)
Quarter: 2017Q1

REPORT INFORMATION
  Report Type: Spontaneous
  Country: US (occurrence: US)
  Receive Date: 20131030
  Receipt Date: 20170202
  Transmission Date: 20170429
  Serious: Yes (Hospitalization, Other)
  Sender: FDA-Public Use
  Company Number: US-GLAXOSMITHKLINE-A1047429A

PATIENT
  Age: 29 Year
  Sex: Female

DRUGS (12)
  1. FLOLAN [Suspect]
     Active Substance: EPOPROSTENOL SODIUM
     Indication: PULMONARY ARTERIAL HYPERTENSION
     Dosage: 28.5 NG/KG/MIN CONTINUOUSLY (CONCENTRATION 45,000 NG/ML; 1.5 MG VIAL STRENGTH)
     Route: 042
     Dates: start: 20101220
  2. FLOLAN [Suspect]
     Active Substance: EPOPROSTENOL SODIUM
     Dosage: 69 DF, CO
  3. FLOLAN [Suspect]
     Active Substance: EPOPROSTENOL SODIUM
     Indication: PULMONARY ARTERIAL HYPERTENSION
     Dosage: UNK
  4. FLOLAN [Suspect]
     Active Substance: EPOPROSTENOL SODIUM
     Dosage: 57.5 NG/KG/MIN, UNK
     Route: 042
  5. FLOLAN [Suspect]
     Active Substance: EPOPROSTENOL SODIUM
     Dosage: 55 NG/KG/MIN, CO
     Route: 042
  6. FLOLAN [Suspect]
     Active Substance: EPOPROSTENOL SODIUM
     Dosage: 55 NG/KG/MIN, CO
     Route: 042
  7. WARFARIN POTASSIUM [Concomitant]
     Active Substance: WARFARIN POTASSIUM
  8. REVATIO [Concomitant]
     Active Substance: SILDENAFIL CITRATE
  9. WARFARIN [Concomitant]
     Active Substance: WARFARIN
  10. FLOLAN [Suspect]
     Active Substance: EPOPROSTENOL SODIUM
     Dosage: 48.5 NG/KG/MIN, 60,000 NG/ML, 76 ML/DAY, 1.5 MG CO
     Route: 042
  11. FUROSEMIDE. [Concomitant]
     Active Substance: FUROSEMIDE
  12. FLOLAN [Suspect]
     Active Substance: EPOPROSTENOL SODIUM
     Indication: PULMONARY ARTERIAL HYPERTENSION

REACTIONS (13)
  - Infection [Unknown]
  - Cold sweat [Unknown]
  - Device infusion issue [Unknown]
  - Pallor [Unknown]
  - Oedema [Recovered/Resolved]
  - Feeling cold [Unknown]
  - Organ transplant [Unknown]
  - Transplant [Unknown]
  - Catheter site infection [Unknown]
  - Blood sodium increased [Recovered/Resolved]
  - Fluid overload [Unknown]
  - Surgery [Unknown]
  - Fluid retention [Unknown]

NARRATIVE: CASE EVENT DATE: 20160822
